FAERS Safety Report 14749789 (Version 1)
Quarter: 2018Q2

REPORT INFORMATION
  Report Type: Spontaneous
  Country: GB (occurrence: GB)
  Receive Date: 20180412
  Receipt Date: 20180412
  Transmission Date: 20180711
  Serious: Yes (Other)
  Sender: FDA-Public Use
  Company Number: GB-TEVA-2018-GB-881317

PATIENT
  Sex: Female

DRUGS (1)
  1. ACTAVIS UK DOXYCYCLINE [Suspect]
     Active Substance: DOXYCYCLINE
     Indication: ANTIBIOTIC PROPHYLAXIS
     Dosage: TAKING TWO THE FIRST DAY THEN CONTINUE ON ONE EVERY DAY FOR FOUR WEEKS.

REACTIONS (2)
  - Abnormal sensation in eye [Not Recovered/Not Resolved]
  - Photopsia [Not Recovered/Not Resolved]
